FAERS Safety Report 7400529-8 (Version None)
Quarter: 2011Q2

REPORT INFORMATION
  Report Type: 
  Country: None (occurrence: None)
  Receive Date: 20110407
  Receipt Date: 20110331
  Transmission Date: 20111010
  Serious: Yes (Hospitalization, Other)
  Sender: FDA-Public Use
  Company Number: FR-PFIZER INC-2011071870

PATIENT
  Age: 42 Year
  Sex: Female

DRUGS (3)
  1. LUTERAN [Concomitant]
  2. EFFEXOR XR [Suspect]
     Dosage: 1 DF, 1X/DAY
     Route: 048
     Dates: start: 20100301, end: 20110131
  3. USTEKINUMAB [Concomitant]
     Indication: PSORIASIS
     Dosage: 1 INJECTION EVERY 6 WEEKS
     Route: 058
     Dates: start: 20100301, end: 20101122

REACTIONS (8)
  - FALL [None]
  - SUBDURAL HAEMORRHAGE [None]
  - GRAND MAL CONVULSION [None]
  - APHASIA [None]
  - SUBARACHNOID HAEMORRHAGE [None]
  - HEADACHE [None]
  - AGITATION [None]
  - VOMITING [None]
